FAERS Safety Report 10053814 (Version 1)
Quarter: 2014Q2

REPORT INFORMATION
  Report Type: Spontaneous
  Country: US (occurrence: US)
  Receive Date: 20140402
  Receipt Date: 20140402
  Transmission Date: 20141212
  Serious: No
  Sender: FDA-Public Use
  Company Number: US-AMGEN-USASP2014016527

PATIENT
  Age: 71 Year
  Sex: Female

DRUGS (2)
  1. ENBREL [Suspect]
     Indication: RHEUMATOID ARTHRITIS
     Dosage: 50 MG, UNK, ONCE EVERY 10 TO 14 DAYS
     Route: 065
     Dates: start: 20040101
  2. EXFORGE [Suspect]
     Indication: BLOOD PRESSURE
     Dosage: UNK
     Route: 065

REACTIONS (1)
  - Dry skin [Not Recovered/Not Resolved]
